FAERS Safety Report 18377346 (Version 1)
Quarter: 2020Q4

REPORT INFORMATION
  Report Type: Spontaneous
  Country: US (occurrence: US)
  Receive Date: 20201013
  Receipt Date: 20201013
  Transmission Date: 20210114
  Serious: No
  Sender: FDA-Public Use
  Company Number: US-PFIZER INC-2020394828

PATIENT
  Age: 35 Year
  Sex: Female
  Weight: .5 kg

DRUGS (1)
  1. XELJANZ XR [Suspect]
     Active Substance: TOFACITINIB CITRATE
     Indication: RHEUMATOID ARTHRITIS
     Dosage: 11 MG, DAILY
     Route: 048
     Dates: start: 201910

REACTIONS (6)
  - Acne [Recovering/Resolving]
  - Joint swelling [Unknown]
  - Pain [Unknown]
  - Condition aggravated [Unknown]
  - Arthritis [Unknown]
  - Insomnia [Unknown]
